FAERS Safety Report 19472954 (Version 1)
Quarter: 2021Q2

REPORT INFORMATION
  Report Type: Report from Study
  Country: None (occurrence: DE)
  Receive Date: 20210629
  Receipt Date: 20210629
  Transmission Date: 20210717
  Serious: Yes (Other)
  Sender: FDA-Public Use
  Company Number: DE-ABBVIE-21K-062-3966252-00

PATIENT
  Age: 44 Year
  Sex: Male

DRUGS (1)
  1. RINVOQ [Suspect]
     Active Substance: UPADACITINIB
     Indication: PSORIATIC ARTHROPATHY
     Route: 048
     Dates: start: 20210613, end: 20210618

REACTIONS (1)
  - Anaesthetic complication [Recovered/Resolved]

NARRATIVE: CASE EVENT DATE: 20210621
